FAERS Safety Report 6640663-3 (Version None)
Quarter: 2010Q1

REPORT INFORMATION
  Report Type: 
  Country: None (occurrence: None)
  Receive Date: 20100302
  Receipt Date: 20100114
  Transmission Date: 20100710
  Serious: No
  Sender: FDA-Public Use
  Company Number: 2009297997

PATIENT
  Age: 68 Year
  Sex: Female
  Weight: 109 kg

DRUGS (9)
  1. TOVIAZ [Suspect]
     Indication: BLADDER DISORDER
     Dosage: 8 MG, 1X/DAY
     Dates: start: 20090901
  2. VENLAFAXINE HCL [Concomitant]
  3. BENICAR [Concomitant]
  4. TRANXENE (GLORAZEPATE DIPOTASSIUM) [Concomitant]
  5. CELEBREX 9CELECOXIB) [Concomitant]
  6. IBANDRONATE SODIUM (BANDRONATE SODIUM) [Concomitant]
  7. LEKOVIT CA (CALCIUM CARBONAT, COLECALCIFEROL) [Concomitant]
  8. CENTRUM SILVER (ASCORBIC ACID, CALCIUM, MINERALS NOS, RETINOL, TOCOPHE [Concomitant]
  9. ASPIRIN [Concomitant]

REACTIONS (2)
  - ALOPECIA [None]
  - CONSTIPATION [None]
